FAERS Safety Report 4678591-5 (Version None)
Quarter: 2005Q2

REPORT INFORMATION
  Report Type: 
  Country: None (occurrence: None)
  Receive Date: 20050527
  Receipt Date: 20050517
  Transmission Date: 20051028
  Serious: Yes (Life-Threatening, Hospitalization)
  Sender: FDA-Public Use
  Company Number: DE-2005-004488

PATIENT
  Age: 46 Year
  Sex: Female
  Weight: 63 kg

DRUGS (4)
  1. MAGNEVIST [Suspect]
     Indication: ANGIOGRAM
     Dosage: 24 ML, 1 DOSE, INTRAVENOUS
     Route: 042
     Dates: start: 20050117, end: 20050117
  2. PROGRAF [Concomitant]
  3. RAMIPRIL [Concomitant]
  4. CARVEDILOL [Concomitant]

REACTIONS (9)
  - ANURIA [None]
  - C-REACTIVE PROTEIN INCREASED [None]
  - CHILLS [None]
  - COMPLICATIONS OF TRANSPLANTED KIDNEY [None]
  - DIALYSIS [None]
  - NAUSEA [None]
  - RENAL FAILURE ACUTE [None]
  - TRANSPLANT FAILURE [None]
  - TREMOR [None]
